FAERS Safety Report 6371097-7 (Version None)
Quarter: 2009Q3

REPORT INFORMATION
  Report Type: 
  Country: None (occurrence: None)
  Receive Date: 20090923
  Receipt Date: 20090914
  Transmission Date: 20100115
  Serious: Yes (Other)
  Sender: FDA-Public Use
  Company Number: PHEH2007US03035

PATIENT
  Sex: Male

DRUGS (3)
  1. ZOMETA [Suspect]
  2. AREDIA [Suspect]
     Indication: MULTIPLE MYELOMA
  3. PREDNISONE [Concomitant]

REACTIONS (39)
  - ANXIETY [None]
  - ARTHRITIS [None]
  - BACK PAIN [None]
  - BONE DISORDER [None]
  - CEREBRAL ATROPHY [None]
  - CHEMOTHERAPY [None]
  - CHRONIC OBSTRUCTIVE PULMONARY DISEASE [None]
  - COLONIC POLYP [None]
  - DEAFNESS [None]
  - DECREASED INTEREST [None]
  - DEFORMITY [None]
  - DEPRESSION [None]
  - DISCOMFORT [None]
  - DYSGEUSIA [None]
  - EMOTIONAL DISTRESS [None]
  - GASTRIC HAEMORRHAGE [None]
  - GENERAL PHYSICAL HEALTH DETERIORATION [None]
  - HYPOAESTHESIA [None]
  - HYPOPHAGIA [None]
  - IMPAIRED HEALING [None]
  - INSOMNIA [None]
  - LIFE EXPECTANCY SHORTENED [None]
  - MIGRAINE [None]
  - MULTIPLE MYELOMA [None]
  - NAUSEA [None]
  - NEUROPATHY PERIPHERAL [None]
  - OSTEOARTHRITIS [None]
  - OSTEONECROSIS [None]
  - PAIN [None]
  - PAIN IN JAW [None]
  - PNEUMONIA [None]
  - RESORPTION BONE INCREASED [None]
  - SINUS DISORDER [None]
  - SINUS TACHYCARDIA [None]
  - SWELLING FACE [None]
  - TOOTH EXTRACTION [None]
  - TOOTHACHE [None]
  - TREMOR [None]
  - VOMITING [None]
